FAERS Safety Report 8097927-9 (Version None)
Quarter: 2012Q1

REPORT INFORMATION
  Report Type: 
  Country: None (occurrence: None)
  Receive Date: 20120128
  Receipt Date: 20110721
  Transmission Date: 20120608
  Serious: No
  Sender: FDA-Public Use
  Company Number: US-ABBOTT-11P-163-0840894-00

PATIENT
  Age: 62 Year
  Sex: Female

DRUGS (4)
  1. PROZAC [Concomitant]
     Indication: DEPRESSION
     Dosage: GENERIC, EVERY MORNING
     Route: 048
     Dates: start: 19980101
  2. PROZAC [Concomitant]
     Indication: ANXIETY
  3. HUMIRA [Suspect]
     Indication: PSORIASIS
     Dates: start: 20080201
  4. VIVELLE [Concomitant]
     Indication: HORMONE REPLACEMENT THERAPY
     Dosage: LOWEST DOSE, APPLY PATCH 2X/WEEK
     Dates: start: 20010101

REACTIONS (1)
  - WHITE BLOOD CELL COUNT DECREASED [None]
